FAERS Safety Report 17010487 (Version 1)
Quarter: 2019Q4

REPORT INFORMATION
  Report Type: Report from Study
  Country: US (occurrence: US)
  Receive Date: 20191108
  Receipt Date: 20191108
  Transmission Date: 20200122
  Serious: Yes (Other)
  Sender: FDA-Public Use
  Company Number: US-ROCHE-2456639

PATIENT
  Sex: Female
  Weight: 101.7 kg

DRUGS (2)
  1. OCREVUS [Suspect]
     Active Substance: OCRELIZUMAB
     Indication: RELAPSING-REMITTING MULTIPLE SCLEROSIS
     Dosage: PREVIOUS INFUSION: 03/DEC/2018 AND 21/DEC/2017?NEXT INFUSION: 20/JUL/2019
     Route: 065
     Dates: end: 20190127
  2. OCREVUS [Suspect]
     Active Substance: OCRELIZUMAB
     Route: 065

REACTIONS (7)
  - Bronchitis [Recovered/Resolved]
  - Ear infection [Recovered/Resolved]
  - Vomiting [Recovered/Resolved]
  - Immunodeficiency [Unknown]
  - Diarrhoea [Recovered/Resolved]
  - Influenza [Recovered/Resolved]
  - Malaise [Recovered/Resolved]

NARRATIVE: CASE EVENT DATE: 2019
